FAERS Safety Report 7656550-8 (Version None)
Quarter: 2011Q3

REPORT INFORMATION
  Report Type: 
  Country: None (occurrence: None)
  Receive Date: 20110804
  Receipt Date: 20110118
  Transmission Date: 20111222
  Serious: No
  Sender: FDA-Public Use
  Company Number: US-BAUSCH-2011BL000305

PATIENT
  Age: 68 Year
  Sex: Male

DRUGS (4)
  1. OPCON-A [Suspect]
     Indication: OCULAR HYPERAEMIA
     Route: 047
     Dates: start: 20110111
  2. PRAVASTATIN [Concomitant]
  3. METFORMIN HCL [Concomitant]
  4. OPCON-A [Suspect]
     Indication: EYE PRURITUS
     Route: 047
     Dates: start: 20110111

REACTIONS (1)
  - BLOOD GLUCOSE INCREASED [None]
